FAERS Safety Report 9098455 (Version 1)
Quarter: 2013Q1

REPORT INFORMATION
  Report Type: Report from Study
  Country: DE (occurrence: DE)
  Receive Date: 20130213
  Receipt Date: 20130213
  Transmission Date: 20140127
  Serious: Yes (Death)
  Sender: FDA-Public Use
  Company Number: DE-PFIZER INC-2013049150

PATIENT
  Age: 69 Year
  Sex: Female

DRUGS (36)
  1. DIFLUCAN [Suspect]
     Indication: CANDIDA INFECTION
     Dosage: 0.5 DF, 1X/DAY
     Route: 042
     Dates: start: 20100118, end: 20100120
  2. TRAMADOL HCL [Suspect]
     Dosage: 20 GTT, 1X/DAY
     Route: 048
     Dates: start: 20100110, end: 20100110
  3. TRAMADOL HCL [Suspect]
     Dosage: 20 GTT, 1X/DAY
     Route: 048
     Dates: start: 20100116, end: 20100116
  4. DIMETICONE [Suspect]
     Indication: CONSTIPATION
     Dosage: 10 ML, 2X/DAY
     Route: 048
     Dates: start: 20100124, end: 20100127
  5. DIMETICONE [Suspect]
     Dosage: 10 ML, 2X/DAY
     Route: 048
     Dates: start: 20100119, end: 20100120
  6. ALBUMIN HUMAN [Suspect]
     Indication: HEPATITIS
     Dosage: UNK
     Route: 042
     Dates: start: 20100113
  7. KONAKION [Suspect]
     Indication: ELECTROLYTE SUBSTITUTION THERAPY
     Dosage: 1 DF, 1X/DAY
     Route: 042
     Dates: start: 20091229, end: 20100113
  8. KONAKION [Suspect]
     Dosage: UNK
     Route: 042
     Dates: start: 20100119
  9. NOVALGIN [Suspect]
     Indication: PYREXIA
     Dosage: UNK
     Route: 048
     Dates: start: 20100127, end: 20100127
  10. NOVALGIN [Suspect]
     Dosage: UNK
     Route: 048
     Dates: start: 20100110, end: 20100110
  11. NOVALGIN [Suspect]
     Dosage: UNK
     Route: 048
     Dates: start: 20100122, end: 20100123
  12. DIPYRONE [Suspect]
     Indication: PYREXIA
     Dosage: 1 G, 1X/DAY
     Route: 042
     Dates: start: 20100122, end: 20100127
  13. MOVICOL [Suspect]
     Indication: CONSTIPATION
     Dosage: 1 DF, 2X/DAY
     Route: 048
     Dates: start: 20100120
  14. POTASSIUM CHLORIDE [Suspect]
     Indication: ELECTROLYTE SUBSTITUTION THERAPY
     Dosage: 1 DF, 2X/DAY
     Route: 048
     Dates: start: 20100119
  15. POTASSIUM CHLORIDE [Suspect]
     Dosage: UNK
     Route: 042
  16. KONAKION [Suspect]
     Indication: ELECTROLYTE SUBSTITUTION THERAPY
     Dosage: 5 GTT, 1X/DAY
     Route: 048
     Dates: start: 20100114, end: 20100120
  17. CLEXANE [Suspect]
     Indication: THROMBOSIS PROPHYLAXIS
     Dosage: 1 DF, 1X/DAY
     Route: 058
     Dates: start: 20100114
  18. LACTULOSE [Concomitant]
     Indication: HEPATITIS
     Dosage: UNK
     Route: 048
     Dates: start: 20100107, end: 20100120
  19. RANITIDINE [Concomitant]
     Indication: PROPHYLAXIS
     Dosage: 150 MG, 1X/DAY
     Route: 048
     Dates: start: 20100122
  20. LIPOFUNDIN MCT [Concomitant]
     Indication: PARENTERAL NUTRITION
     Dosage: 250 ML, UNK
     Route: 065
     Dates: start: 20100122
  21. DOXYCYCLINE [Concomitant]
     Indication: PERITONITIS
     Dosage: 200 MG, 2X/DAY
     Route: 048
     Dates: start: 20100125
  22. ALDACTONE [Concomitant]
     Indication: ASCITES
     Dosage: UNK
     Route: 048
     Dates: start: 20100125
  23. ROCEPHIN [Concomitant]
     Indication: PERITONITIS
     Dosage: 2 G, 2X/DAY
     Route: 042
     Dates: start: 20100126
  24. POTASSIUM CHLORIDE [Concomitant]
     Indication: ELECTROLYTE SUBSTITUTION THERAPY
     Dosage: UNK
     Route: 042
     Dates: start: 20100122
  25. VITALIPIDE [Concomitant]
     Indication: PARENTERAL NUTRITION
     Dosage: UNK
     Route: 042
     Dates: start: 20100121
  26. SOLUVIT [Concomitant]
     Indication: PARENTERAL NUTRITION
     Dosage: UNK
     Route: 042
     Dates: start: 20100121
  27. TETANUS VACCINE [Concomitant]
     Indication: PARENTERAL NUTRITION
     Dosage: UNK
     Route: 042
     Dates: start: 20100121
  28. NUTRIFLEX [Concomitant]
     Indication: ELECTROLYTE SUBSTITUTION THERAPY
     Dosage: UNK
     Route: 042
     Dates: start: 20100121, end: 20100122
  29. SODIUM BICARBONATE [Concomitant]
     Indication: ELECTROLYTE SUBSTITUTION THERAPY
     Dosage: 100 ML, UNK
     Route: 042
     Dates: start: 20100121, end: 20100121
  30. CLONT [Concomitant]
     Indication: AMOEBIC DYSENTERY
     Dosage: 1 DF, 2X/DAY
     Route: 048
     Dates: start: 20100115, end: 20100120
  31. MERONEM [Concomitant]
     Indication: PERITONITIS
     Dosage: 1000 MG, 3X/DAY
     Route: 042
     Dates: start: 20100114, end: 20100120
  32. AQUAPHOR HEALING OINTMENT [Concomitant]
     Indication: ASCITES
     Dosage: 10 MG, 1X/DAY
     Route: 048
     Dates: start: 20100126
  33. CIPROBAY [Concomitant]
     Indication: PERITONITIS
     Dosage: 500 MG, 2X/DAY
     Route: 048
     Dates: start: 20100113, end: 20100116
  34. CEFPODOXIME [Concomitant]
     Indication: INFECTION
     Dosage: 1 DF, 2X/DAY
     Route: 048
     Dates: end: 20100113
  35. AMPHO-MORONAL [Concomitant]
     Indication: CANDIDA INFECTION
     Dosage: 1 DF, 4X/DAY
     Route: 061
     Dates: start: 20100107, end: 20100117
  36. ACETYLSALICYLIC ACID/PARACETAMOL [Concomitant]
     Indication: PYREXIA
     Dosage: UNK
     Route: 042
     Dates: start: 20100114, end: 20100117

REACTIONS (1)
  - Toxic epidermal necrolysis [Fatal]
